FAERS Safety Report 10666716 (Version 2)
Quarter: 2014Q4

REPORT INFORMATION
  Report Type: Spontaneous
  Country: JP (occurrence: JP)
  Receive Date: 20141222
  Receipt Date: 20141222
  Transmission Date: 20150529
  Serious: Yes (Death)
  Sender: FDA-Public Use
  Company Number: JP-PFIZER INC-2014329934

PATIENT
  Age: 88 Year
  Sex: Female
  Weight: 40 kg

DRUGS (1)
  1. XALKORI [Suspect]
     Active Substance: CRIZOTINIB
     Indication: LUNG NEOPLASM MALIGNANT
     Dosage: 400 MG, DAILY
     Route: 048

REACTIONS (6)
  - Disease progression [Fatal]
  - White blood cell count increased [Fatal]
  - Dysphonia [Not Recovered/Not Resolved]
  - Decreased appetite [Not Recovered/Not Resolved]
  - Fibrin D dimer increased [Fatal]
  - Lung neoplasm malignant [Fatal]
